FAERS Safety Report 11302194 (Version 1)
Quarter: 2015Q3

REPORT INFORMATION
  Report Type: Spontaneous
  Country: US (occurrence: US)
  Receive Date: 20150722
  Receipt Date: 20150722
  Transmission Date: 20151125
  Serious: No
  Sender: FDA-Public Use
  Company Number: US-ELI_LILLY_AND_COMPANY-US200809005804

PATIENT
  Age: 79 Year
  Sex: Female

DRUGS (3)
  1. EVISTA [Suspect]
     Active Substance: RALOXIFENE HYDROCHLORIDE
     Indication: BREAST CANCER RECURRENT
     Dosage: UNK, UNKNOWN
     Route: 065
     Dates: start: 1998
  2. PREDNISONE. [Concomitant]
     Active Substance: PREDNISONE
     Indication: RASH GENERALISED
     Dosage: UNK, UNKNOWN
     Route: 065
     Dates: start: 20080915
  3. SYNTHROID [Concomitant]
     Active Substance: LEVOTHYROXINE SODIUM
     Indication: HYPOTHYROIDISM
     Dosage: UNK, UNKNOWN
     Route: 065

REACTIONS (6)
  - Perivascular dermatitis [Not Recovered/Not Resolved]
  - Hypothyroidism [Recovered/Resolved]
  - Rash generalised [Not Recovered/Not Resolved]
  - Dermatitis [Not Recovered/Not Resolved]
  - Pruritus [Not Recovered/Not Resolved]
  - Eczema [Not Recovered/Not Resolved]

NARRATIVE: CASE EVENT DATE: 200710
